FAERS Safety Report 6556802-9 (Version None)
Quarter: 2010Q1

REPORT INFORMATION
  Report Type: 
  Country: None (occurrence: None)
  Receive Date: 20100128
  Receipt Date: 20100118
  Transmission Date: 20100710
  Serious: Yes (Hospitalization)
  Sender: FDA-Public Use
  Company Number: PHHY2010VE02729

PATIENT
  Sex: Male

DRUGS (8)
  1. DIOVAN HCT [Suspect]
     Indication: HYPERTENSION
     Dosage: 160/12.5 MG
  2. LIPITOR [Concomitant]
     Dosage: 20MG, ONCE A DAY, MORE THAN 2 YEARS AGO
  3. LIPITOR [Concomitant]
     Dosage: 10 MG, UNK
  4. ASPIRIN [Concomitant]
     Dosage: UNK
     Dates: start: 20040101
  5. PLAVIX [Concomitant]
     Dosage: UNK
     Dates: start: 20080101
  6. LOVAZA [Concomitant]
     Dosage: UNK
  7. BLOKIUM [Concomitant]
     Dosage: 50 MG, STARTED MORE THAN 8 YEARS AGO
  8. HYPERLIPEN [Concomitant]
     Dosage: UNK

REACTIONS (3)
  - CEREBROVASCULAR ACCIDENT [None]
  - HYPERGLYCAEMIA [None]
  - HYPERLIPIDAEMIA [None]
